FAERS Safety Report 6508086-5 (Version None)
Quarter: 2009Q4

REPORT INFORMATION
  Report Type: 
  Country: None (occurrence: None)
  Receive Date: 20091221
  Receipt Date: 20091216
  Transmission Date: 20100525
  Serious: Yes (Hospitalization)
  Sender: FDA-Public Use
  Company Number: DE-WYE-H12703209

PATIENT
  Age: 77 Year
  Sex: Male

DRUGS (5)
  1. PANTOZOL [Suspect]
     Indication: PAIN
     Route: 048
     Dates: start: 20090429, end: 20090430
  2. MACROGOL [Suspect]
     Indication: CONSTIPATION
     Route: 048
     Dates: start: 20090429, end: 20090430
  3. VOLTAREN [Suspect]
     Indication: PAIN
     Route: 048
     Dates: start: 20090429, end: 20090430
  4. TAXOTERE [Suspect]
     Indication: NEOPLASM MALIGNANT
     Dosage: 120 MG 1 IN 1 CYCLICAL
     Route: 042
  5. MORPHINE SULFATE [Suspect]
     Indication: PAIN
     Dosage: 30 MG
     Route: 048
     Dates: start: 20090429, end: 20090430

REACTIONS (3)
  - BONE PAIN [None]
  - GENERAL PHYSICAL HEALTH DETERIORATION [None]
  - LEUKOPENIA [None]
